FAERS Safety Report 12995859 (Version 2)
Quarter: 2017Q1

REPORT INFORMATION
  Report Type: Report from Study
  Country: None (occurrence: US)
  Receive Date: 20161202
  Receipt Date: 20170204
  Transmission Date: 20170428
  Serious: Yes (Other)
  Sender: FDA-Public Use
  Company Number: US-ABBVIE-16K-163-1598451-00

PATIENT
  Age: 63 Year
  Sex: Female

DRUGS (2)
  1. HUMIRA [Suspect]
     Active Substance: ADALIMUMAB
     Route: 058
     Dates: start: 201607
  2. HUMIRA [Suspect]
     Active Substance: ADALIMUMAB
     Indication: RHEUMATOID ARTHRITIS
     Route: 058
     Dates: start: 20080715, end: 20160307

REACTIONS (11)
  - Back pain [Unknown]
  - Post procedural complication [Unknown]
  - Hypoaesthesia [Unknown]
  - Depressed mood [Unknown]
  - Arthralgia [Unknown]
  - Pain in extremity [Unknown]
  - Post procedural complication [Unknown]
  - Gait disturbance [Unknown]
  - Spinal operation [Recovered/Resolved]
  - Cold sweat [Not Recovered/Not Resolved]
  - Weight bearing difficulty [Unknown]

NARRATIVE: CASE EVENT DATE: 20160308
